FAERS Safety Report 7352610-X (Version None)
Quarter: 2011Q1

REPORT INFORMATION
  Report Type: 
  Country: None (occurrence: None)
  Receive Date: 20110315
  Receipt Date: 20110303
  Transmission Date: 20110831
  Serious: Yes (Other)
  Sender: FDA-Public Use
  Company Number: US-BAYER-200943452NA

PATIENT
  Sex: Female
  Weight: 164 kg

DRUGS (12)
  1. MAGNEVIST [Suspect]
     Indication: JOINT SWELLING
     Dates: start: 20070407, end: 20070407
  2. LISINOPRIL [Concomitant]
  3. CYMBALTA [Concomitant]
  4. XANAX [Concomitant]
  5. MAGNEVIST [Suspect]
     Indication: ARTHRALGIA
  6. UNSPECIFIED GADOLINIUM BASED CONTRAST AGENTS [Suspect]
     Indication: NUCLEAR MAGNETIC RESONANCE IMAGING
     Dosage: ^4 OR 5 MRI'S WITH CONTRAST DYE^; RECORDS ELSWHERE STATE APPROXIMATELY 12 MRI'S
  7. SPIRIVA [Concomitant]
  8. SINGULAIR [Concomitant]
  9. GABAPENTIN [Concomitant]
  10. MAGNEVIST [Suspect]
     Indication: NUCLEAR MAGNETIC RESONANCE IMAGING
     Dates: start: 20070207, end: 20070207
  11. LOSARTAN [Concomitant]
  12. ALBUTEROL [Concomitant]

REACTIONS (23)
  - SKIN INDURATION [None]
  - SKIN ULCER [None]
  - PAIN [None]
  - JOINT RANGE OF MOTION DECREASED [None]
  - CUTANEOUS CONTOUR DEFORMITY [None]
  - RASH PRURITIC [None]
  - DRY SKIN [None]
  - SKIN DISCOLOURATION [None]
  - ERYTHEMA [None]
  - ASTHENIA [None]
  - JOINT LOCK [None]
  - BLISTER [None]
  - MUSCULOSKELETAL STIFFNESS [None]
  - SKIN PLAQUE [None]
  - SKIN HYPERTROPHY [None]
  - GAIT DISTURBANCE [None]
  - PRURITUS GENERALISED [None]
  - NEPHROGENIC SYSTEMIC FIBROSIS [None]
  - SKIN LESION [None]
  - PARAESTHESIA [None]
  - SKIN TIGHTNESS [None]
  - SKIN MASS [None]
  - OEDEMA PERIPHERAL [None]
